FAERS Safety Report 24432183 (Version 1)
Quarter: 2024Q4

REPORT INFORMATION
  Report Type: Spontaneous
  Country: US (occurrence: US)
  Receive Date: 20241014
  Receipt Date: 20241014
  Transmission Date: 20250114
  Serious: No
  Sender: LEO PHARM
  Company Number: US-LEO Pharma-374168

PATIENT
  Age: 56 Year
  Sex: Female

DRUGS (1)
  1. ADBRY [Suspect]
     Active Substance: TRALOKINUMAB-LDRM
     Indication: Dermatitis atopic
     Route: 058
     Dates: start: 202407

REACTIONS (5)
  - Dry skin [Unknown]
  - Pruritus [Unknown]
  - Feeling hot [Unknown]
  - Peripheral swelling [Unknown]
  - Arthralgia [Unknown]
